FAERS Safety Report 17676348 (Version 1)
Quarter: 2020Q2

REPORT INFORMATION
  Report Type: Spontaneous
  Country: GB (occurrence: GB)
  Receive Date: 20200416
  Receipt Date: 20200416
  Transmission Date: 20200714
  Serious: Yes (Hospitalization, Other)
  Sender: FDA-Public Use
  Company Number: GB-AUROBINDO-AUR-APL-2020-018408

PATIENT
  Age: 67 Year
  Sex: Male

DRUGS (5)
  1. SOLIRIS [Suspect]
     Active Substance: ECULIZUMAB
     Dosage: 900 MILLIGRAM, EVERY 2 WEEKS
     Route: 042
     Dates: start: 20091028
  2. SOLIRIS [Suspect]
     Active Substance: ECULIZUMAB
     Dosage: 900 MILLIGRAM, EVERY 2 WEEKS
     Route: 042
     Dates: start: 20091028
  3. TRANEXAMIC ACID. [Suspect]
     Active Substance: TRANEXAMIC ACID
     Indication: PRODUCT USED FOR UNKNOWN INDICATION
     Dosage: UNK
     Route: 065
  4. SOLIRIS [Suspect]
     Active Substance: ECULIZUMAB
     Dosage: UNK
  5. SOLIRIS [Suspect]
     Active Substance: ECULIZUMAB
     Indication: PAROXYSMAL NOCTURNAL HAEMOGLOBINURIA
     Dosage: 600 MILLIGRAM, EVERY WEEK
     Route: 042
     Dates: start: 20090930

REACTIONS (7)
  - Fatigue [Not Recovered/Not Resolved]
  - Haemoglobin decreased [Unknown]
  - Hypotension [Unknown]
  - Platelet count decreased [Unknown]
  - Fall [Unknown]
  - Head injury [Unknown]
  - Cerebral haemorrhage [Unknown]

NARRATIVE: CASE EVENT DATE: 202003
